FAERS Safety Report 9711603 (Version 1)
Quarter: 2013Q4

REPORT INFORMATION
  Report Type: Spontaneous
  Country: US (occurrence: US)
  Receive Date: 20131126
  Receipt Date: 20131126
  Transmission Date: 20140711
  Serious: No
  Sender: FDA-Public Use
  Company Number: US-BRISTOL-MYERS SQUIBB COMPANY-18777649

PATIENT
  Age: 58 Year
  Sex: Female
  Weight: 97.5 kg

DRUGS (6)
  1. BYDUREON [Suspect]
     Dosage: INJECTION
  2. JANUVIA [Concomitant]
  3. LANTUS [Concomitant]
  4. INSULIN [Concomitant]
  5. HUMALOG [Concomitant]
  6. INSULIN [Concomitant]

REACTIONS (1)
  - Injection site haemorrhage [Recovered/Resolved]
